FAERS Safety Report 10069371 (Version 1)
Quarter: 2014Q2

REPORT INFORMATION
  Report Type: Spontaneous
  Country: FR (occurrence: FR)
  Receive Date: 20140410
  Receipt Date: 20140410
  Transmission Date: 20141212
  Serious: Yes (Hospitalization)
  Sender: FDA-Public Use
  Company Number: FR-ROCHE-1379323

PATIENT
  Age: 65 Year
  Sex: Female

DRUGS (8)
  1. HERCEPTIN [Suspect]
     Indication: BREAST CANCER
     Route: 042
     Dates: start: 20131126
  2. HERCEPTIN [Suspect]
     Route: 042
     Dates: start: 20140122
  3. TAXOL [Suspect]
     Indication: BREAST CANCER
     Route: 042
     Dates: start: 20140116
  4. RIFAMPICINE [Concomitant]
  5. SOLUPRED (FRANCE) [Concomitant]
     Route: 065
     Dates: start: 20131218, end: 20140104
  6. TAXOTERE [Concomitant]
     Route: 065
     Dates: start: 20131126
  7. CELLCEPT [Concomitant]
     Route: 065
     Dates: start: 2001, end: 20131204
  8. NOVONORM [Concomitant]

REACTIONS (1)
  - Lung disorder [Recovering/Resolving]
